FAERS Safety Report 19326806 (Version 3)
Quarter: 2021Q3

REPORT INFORMATION
  Report Type: Spontaneous
  Country: US (occurrence: US)
  Receive Date: 20210528
  Receipt Date: 20210715
  Transmission Date: 20211014
  Serious: Yes (Other)
  Sender: FDA-Public Use
  Company Number: US-AMGEN-USASP2021078484

PATIENT
  Sex: Female

DRUGS (1)
  1. PROLIA [Suspect]
     Active Substance: DENOSUMAB
     Indication: OSTEOPOROSIS POSTMENOPAUSAL
     Dosage: UNK
     Route: 065

REACTIONS (6)
  - Tooth resorption [Unknown]
  - Treatment failure [Unknown]
  - Dental implantation [Unknown]
  - Thoracic vertebral fracture [Unknown]
  - Loose tooth [Not Recovered/Not Resolved]
  - Orthodontic procedure [Unknown]
